FAERS Safety Report 9879929 (Version 3)
Quarter: 2014Q1

REPORT INFORMATION
  Report Type: Spontaneous
  Country: CA (occurrence: CA)
  Receive Date: 20140207
  Receipt Date: 20140325
  Transmission Date: 20141002
  Serious: Yes (Other)
  Sender: FDA-Public Use
  Company Number: CA-AMGEN-CANSP2014007457

PATIENT
  Age: 70 Year
  Sex: Male
  Weight: 90.7 kg

DRUGS (9)
  1. ENBREL [Suspect]
     Indication: RHEUMATOID ARTHRITIS
     Dosage: 50 MG, QWK
     Route: 058
     Dates: start: 2006
  2. FOLIC ACID [Concomitant]
     Dosage: UNK
  3. ASA [Concomitant]
     Dosage: UNK
  4. METHOTREXATE [Concomitant]
     Dosage: UNK
  5. MOBICOX [Concomitant]
     Dosage: UNK
  6. TELMISARTAN [Concomitant]
     Dosage: UNK
  7. ZOCON                              /00012501/ [Concomitant]
     Dosage: UNK
  8. ZANTAC [Concomitant]
     Dosage: UNK
  9. TRAMADOL [Concomitant]
     Dosage: UNK

REACTIONS (1)
  - Diffuse large B-cell lymphoma stage I [Not Recovered/Not Resolved]
